FAERS Safety Report 10051268 (Version 1)
Quarter: 2014Q2

REPORT INFORMATION
  Report Type: Spontaneous
  Country: BR (occurrence: BR)
  Receive Date: 20140401
  Receipt Date: 20140401
  Transmission Date: 20141212
  Serious: Yes (Other)
  Sender: FDA-Public Use
  Company Number: BR-ASTRAZENECA-2014SE20728

PATIENT
  Age: 63 Year
  Sex: Female
  Weight: 95 kg

DRUGS (4)
  1. VIMOVO [Suspect]
     Indication: OSTEOARTHRITIS
     Dosage: 500 MG + 20 MG
     Route: 048
     Dates: start: 20140319
  2. CRESTOR [Suspect]
     Indication: BLOOD CHOLESTEROL INCREASED
     Route: 048
     Dates: start: 2009
  3. DIOVAN TRIPLO [Suspect]
     Indication: HYPERTENSION
     Dosage: DAILY
     Route: 048
     Dates: start: 2009
  4. GLUCOSAMINE [Concomitant]
     Indication: OSTEOARTHRITIS
     Route: 048
     Dates: start: 2011, end: 20140318

REACTIONS (3)
  - Osteoarthritis [Not Recovered/Not Resolved]
  - Joint swelling [Recovering/Resolving]
  - Back pain [Not Recovered/Not Resolved]
